FAERS Safety Report 8041608-4 (Version None)
Quarter: 2012Q1

REPORT INFORMATION
  Report Type: 
  Country: None (occurrence: None)
  Receive Date: 20120112
  Receipt Date: 20120104
  Transmission Date: 20120608
  Serious: Yes (Hospitalization)
  Sender: FDA-Public Use
  Company Number: US-BAYER-2011-062587

PATIENT
  Age: 25 Year
  Sex: Female

DRUGS (8)
  1. YASMIN [Suspect]
     Indication: ACNE
  2. MEFOXIN [Concomitant]
  3. DEMEROL [Concomitant]
  4. TORADOL [Concomitant]
     Indication: ABDOMINAL PAIN UPPER
     Dosage: UNK
     Dates: start: 20070404
  5. YASMIN [Suspect]
     Indication: CONTRACEPTION
     Dosage: UNK
     Dates: start: 20070322, end: 20080501
  6. FLAGYL [Concomitant]
  7. DILAUDID [Concomitant]
     Indication: ABDOMINAL PAIN UPPER
     Dosage: UNK
     Dates: start: 20070404
  8. ZANTAC [Concomitant]
     Dosage: UNK
     Dates: start: 20070301, end: 20070401

REACTIONS (6)
  - CHOLECYSTITIS CHRONIC [None]
  - INJURY [None]
  - EMOTIONAL DISTRESS [None]
  - PAIN [None]
  - CHOLELITHIASIS [None]
  - ANXIETY [None]
